FAERS Safety Report 6768621-9 (Version None)
Quarter: 2010Q2

REPORT INFORMATION
  Report Type: 
  Country: None (occurrence: None)
  Receive Date: 20100614
  Receipt Date: 20100603
  Transmission Date: 20101027
  Serious: Yes (Other)
  Sender: FDA-Public Use
  Company Number: US-PFIZER INC-2010061115

PATIENT
  Sex: Female
  Weight: 48 kg

DRUGS (3)
  1. SPIRONOLACTONE [Suspect]
     Indication: HEPATIC NEOPLASM MALIGNANT
     Dosage: 50 MG, 2X/DAY
     Route: 048
     Dates: start: 20100415
  2. METAMUCIL-2 [Concomitant]
     Dosage: UNK
  3. LASIX [Concomitant]
     Dosage: UNK

REACTIONS (10)
  - ABDOMINAL DISTENSION [None]
  - ABDOMINAL PAIN UPPER [None]
  - BLOOD POTASSIUM INCREASED [None]
  - CRYING [None]
  - DYSPHAGIA [None]
  - DYSPNOEA [None]
  - FAECES DISCOLOURED [None]
  - FLATULENCE [None]
  - GASTROINTESTINAL HYPERMOTILITY [None]
  - ORAL DISCOMFORT [None]
